FAERS Safety Report 18997728 (Version 1)
Quarter: 2021Q1

REPORT INFORMATION
  Report Type: Report from Study
  Country: IT (occurrence: IT)
  Receive Date: 20210311
  Receipt Date: 20210311
  Transmission Date: 20210420
  Serious: Yes (Other)
  Sender: FDA-Public Use
  Company Number: IT-VIIV HEALTHCARE LIMITED-IT2021GSK058522

PATIENT
  Age: 39 Year
  Sex: Male

DRUGS (13)
  1. LAMIVUDINE HIV [Suspect]
     Active Substance: LAMIVUDINE
     Dosage: UNK
  2. ZIDOVUDINE. [Concomitant]
     Active Substance: ZIDOVUDINE
     Indication: HIV INFECTION
     Dosage: UNK
  3. ZIDOVUDINE. [Concomitant]
     Active Substance: ZIDOVUDINE
     Dosage: UNK
  4. ABACAVIR. [Suspect]
     Active Substance: ABACAVIR
     Indication: HIV INFECTION
     Dosage: UNK
  5. TENOFOVIR DISOPROXIL FUMARATE. [Suspect]
     Active Substance: TENOFOVIR DISOPROXIL FUMARATE
     Indication: HIV INFECTION
     Dosage: UNK
  6. DARUNAVIR + RITONAVIR [Suspect]
     Active Substance: DARUNAVIR\RITONAVIR
     Indication: HIV INFECTION
     Dosage: UNK, QD
  7. MARAVIROC [Concomitant]
     Active Substance: MARAVIROC
     Indication: HIV INFECTION
     Dosage: UNK
  8. LAMIVUDINE HIV [Suspect]
     Active Substance: LAMIVUDINE
     Indication: HIV INFECTION
     Dosage: UNK
  9. LAMIVUDINE HIV [Suspect]
     Active Substance: LAMIVUDINE
     Dosage: UNK
  10. DARUNAVIR + RITONAVIR [Suspect]
     Active Substance: DARUNAVIR\RITONAVIR
     Dosage: UNK, BID
  11. EMTRICITABINE [Suspect]
     Active Substance: EMTRICITABINE
     Indication: HIV INFECTION
     Dosage: UNK
  12. RALTEGRAVIR. [Concomitant]
     Active Substance: RALTEGRAVIR
     Indication: HIV INFECTION
     Dosage: UNK
  13. DARUNAVIR + RITONAVIR [Suspect]
     Active Substance: DARUNAVIR\RITONAVIR
     Dosage: UNK, BID

REACTIONS (13)
  - Disease recurrence [Recovered/Resolved]
  - Nervous system disorder [Recovered/Resolved]
  - Cerebral disorder [Recovered/Resolved]
  - White matter lesion [Recovered/Resolved]
  - Peripheral venous disease [Recovered/Resolved]
  - Pathogen resistance [Unknown]
  - Headache [Recovered/Resolved]
  - Brain oedema [Recovered/Resolved]
  - Viral mutation identified [Unknown]
  - Virologic failure [Recovered/Resolved]
  - CSF HIV escape syndrome [Recovered/Resolved]
  - Cognitive disorder [Recovered/Resolved]
  - Atrophy [Recovered/Resolved]
